FAERS Safety Report 4512323-6 (Version None)
Quarter: 2004Q4

REPORT INFORMATION
  Report Type: 
  Country: None (occurrence: None)
  Receive Date: 20041129
  Receipt Date: 20041117
  Transmission Date: 20050328
  Serious: Yes (Death, Other)
  Sender: FDA-Public Use
  Company Number: GB-GLAXOSMITHKLINE-B0357557A

PATIENT
  Age: 77 Year
  Sex: Male
  Weight: 70 kg

DRUGS (4)
  1. PAROXETINE HCL [Suspect]
     Indication: DEPRESSION
     Dosage: 10MG PER DAY
     Route: 048
     Dates: start: 20041028
  2. CLONAZEPAM [Concomitant]
     Indication: ANXIETY
     Dosage: 2MG PER DAY
     Route: 065
     Dates: start: 20031201
  3. LORAZEPAM [Concomitant]
     Indication: ANXIETY
     Dosage: 1MG PER DAY
     Route: 065
     Dates: start: 20031201
  4. FLUDROCORTISONE ACETATE TAB [Concomitant]
     Indication: ORTHOSTATIC HYPOTENSION
     Dosage: 100MCG PER DAY
     Route: 065
     Dates: start: 20040201

REACTIONS (1)
  - COMPLETED SUICIDE [None]
